FAERS Safety Report 15342782 (Version 8)
Quarter: 2020Q4

REPORT INFORMATION
  Report Type: Spontaneous
  Country: JP (occurrence: JP)
  Receive Date: 20180903
  Receipt Date: 20201222
  Transmission Date: 20210113
  Serious: Yes (Hospitalization, Other)
  Sender: FDA-Public Use
  Company Number: JP-BRISTOL-MYERS SQUIBB COMPANY-BMS-2018-080848

PATIENT
  Age: 73 Year
  Sex: Female

DRUGS (4)
  1. PEMBROLIZUMAB. [Suspect]
     Active Substance: PEMBROLIZUMAB
     Indication: MALIGNANT MELANOMA
     Dosage: UNK
     Route: 065
     Dates: start: 20170227
  2. YERVOY [Suspect]
     Active Substance: IPILIMUMAB
     Indication: MALIGNANT MELANOMA
     Dosage: UNK
     Route: 041
  3. YERVOY [Suspect]
     Active Substance: IPILIMUMAB
     Dosage: 4 TH COURSE
     Route: 041
     Dates: start: 20171102
  4. PEMBROLIZUMAB. [Suspect]
     Active Substance: PEMBROLIZUMAB
     Dosage: 8TH COURSE
     Route: 065
     Dates: start: 20170810

REACTIONS (5)
  - Hyperamylasaemia [Recovering/Resolving]
  - Diabetic ketoacidosis [Recovering/Resolving]
  - Acute kidney injury [Recovering/Resolving]
  - Blood creatine phosphokinase increased [Recovering/Resolving]
  - Type 1 diabetes mellitus [Recovering/Resolving]

NARRATIVE: CASE EVENT DATE: 20171122
